FAERS Safety Report 9530778 (Version 1)
Quarter: 2013Q1

REPORT INFORMATION
  Report Type: Spontaneous
  Country: US (occurrence: None)
  Receive Date: 20130315
  Receipt Date: 20130315
  Transmission Date: 20140127
  Serious: Yes (Other)
  Sender: FDA-Public Use
  Company Number: US-JNJFOC-20121212588

PATIENT
  Age: 84 Year
  Sex: Male

DRUGS (1)
  1. IBUPROFEN (IBUPROFEN) [Suspect]
     Indication: ARTHRALGIA

REACTIONS (1)
  - Renal failure [None]
